FAERS Safety Report 7483758-7 (Version None)
Quarter: 2011Q2

REPORT INFORMATION
  Report Type: 
  Country: None (occurrence: None)
  Receive Date: 20110517
  Receipt Date: 20110509
  Transmission Date: 20111010
  Serious: Yes (Other)
  Sender: FDA-Public Use
  Company Number: PHHY2011JP29994

PATIENT
  Age: 76 Year
  Sex: Female

DRUGS (3)
  1. LAMISIL [Suspect]
     Dosage: UNK
     Route: 048
     Dates: start: 20060912, end: 20070401
  2. NUTRITION SUPPLEMENTS [Suspect]
  3. THYRADIN [Concomitant]

REACTIONS (3)
  - PLATELET COUNT DECREASED [None]
  - BLOOD PRESSURE INCREASED [None]
  - IDIOPATHIC THROMBOCYTOPENIC PURPURA [None]
